FAERS Safety Report 5738678-2 (Version None)
Quarter: 2008Q2

REPORT INFORMATION
  Report Type: 
  Country: None (occurrence: None)
  Receive Date: 20080515
  Receipt Date: 20080505
  Transmission Date: 20081010
  Serious: Yes (Other)
  Sender: FDA-Public Use
  Company Number: CN-NOVOPROD-273994

PATIENT
  Age: 24 Year
  Sex: Female
  Weight: 59 kg

DRUGS (3)
  1. NOVOLIN R [Suspect]
     Indication: TYPE 1 DIABETES MELLITUS
     Dosage: 24.3 IU, QD
     Route: 058
     Dates: start: 20061201
  2. NOVOLIN R [Suspect]
  3. ENALAPRIL MALEATE [Concomitant]
     Dosage: 20 MG, QD
     Dates: start: 20010701

REACTIONS (5)
  - BLOOD GLUCOSE INCREASED [None]
  - DRY MOUTH [None]
  - DYSPNOEA [None]
  - PHARYNGOLARYNGEAL PAIN [None]
  - VOMITING [None]
